FAERS Safety Report 7096479-X (Version None)
Quarter: 2010Q4

REPORT INFORMATION
  Report Type: 
  Country: None (occurrence: None)
  Receive Date: 20101111
  Receipt Date: 20101103
  Transmission Date: 20110411
  Serious: Yes (Other)
  Sender: FDA-Public Use
  Company Number: GB-PFIZER INC-2010140711

PATIENT
  Age: 55 Year
  Sex: Male

DRUGS (1)
  1. EPANUTIN [Suspect]
     Dosage: 50 MG EVERY MORNING AND 100 EVERY NIGHT

REACTIONS (2)
  - CHOKING [None]
  - DYSPHAGIA [None]
